FAERS Safety Report 6756119-3 (Version None)
Quarter: 2010Q2

REPORT INFORMATION
  Report Type: 
  Country: None (occurrence: None)
  Receive Date: 20100603
  Receipt Date: 20100603
  Transmission Date: 20101027
  Serious: No
  Sender: FDA-Public Use
  Company Number: None

PATIENT
  Age: 60 Year
  Sex: Male
  Weight: 90.9 kg

DRUGS (2)
  1. MITOXANTRONE [Suspect]
     Indication: ACUTE MYELOID LEUKAEMIA
     Dosage: 20.8 MG EVERY DAY IV
     Route: 042
     Dates: start: 20100129, end: 20100203
  2. ETOPOSIDE [Suspect]
     Indication: ACUTE MYELOID LEUKAEMIA
     Dosage: 208 MG EVERY DAY IV
     Route: 042
     Dates: start: 20100129, end: 20100203

REACTIONS (1)
  - FEBRILE NEUTROPENIA [None]
